FAERS Safety Report 5311166-3 (Version None)
Quarter: 2007Q2

REPORT INFORMATION
  Report Type: 
  Country: None (occurrence: None)
  Receive Date: 20070426
  Receipt Date: 20070426
  Transmission Date: 20071010
  Serious: Yes (Other)
  Sender: FDA-Public Use
  Company Number: None

PATIENT
  Age: 39 Year
  Sex: Female

DRUGS (1)
  1. ROBINUL 1 MG [Suspect]
     Indication: VERTIGO
     Dosage: 1 MG BID PO
     Route: 048
     Dates: start: 20070423, end: 20070425

REACTIONS (3)
  - HEADACHE [None]
  - HEART RATE INCREASED [None]
  - HYPERTENSION [None]
